FAERS Safety Report 5987074-1 (Version None)
Quarter: 2008Q4

REPORT INFORMATION
  Report Type: 
  Country: None (occurrence: None)
  Receive Date: 20081209
  Receipt Date: 20080327
  Transmission Date: 20090506
  Serious: Yes (Other)
  Sender: FDA-Public Use
  Company Number: A0717866A

PATIENT
  Age: 58 Year
  Sex: Male

DRUGS (2)
  1. AVANDAMET [Suspect]
     Route: 048
     Dates: start: 20080101, end: 20080201
  2. NO CONCURRENT MEDICATION [Concomitant]

REACTIONS (2)
  - OCULAR ICTERUS [None]
  - YELLOW SKIN [None]
